FAERS Safety Report 17734809 (Version 1)
Quarter: 2020Q2

REPORT INFORMATION
  Report Type: Spontaneous
  Country: US (occurrence: US)
  Receive Date: 20200501
  Receipt Date: 20200501
  Transmission Date: 20200714
  Serious: No
  Sender: FDA-Public Use
  Company Number: US-TEVA-2020-US-1226229

PATIENT
  Age: 59 Year
  Sex: Female

DRUGS (1)
  1. CARTIA XT [Suspect]
     Active Substance: DILTIAZEM HYDROCHLORIDE
     Indication: HYPERTENSION
     Dosage: 300 MILLIGRAM DAILY;
     Route: 065
     Dates: start: 20200408

REACTIONS (7)
  - Blood pressure increased [Unknown]
  - Headache [Unknown]
  - Drug ineffective [Unknown]
  - Flushing [Unknown]
  - Product odour abnormal [Unknown]
  - Product quality issue [Unknown]
  - Palpitations [Unknown]

NARRATIVE: CASE EVENT DATE: 20200408
